FAERS Safety Report 8374501-8 (Version None)
Quarter: 2012Q2

REPORT INFORMATION
  Report Type: 
  Country: None (occurrence: None)
  Receive Date: 20120521
  Receipt Date: 20120515
  Transmission Date: 20120825
  Serious: Yes (Death, Hospitalization, Other)
  Sender: FDA-Public Use
  Company Number: IT-CELGENEUS-083-CCAZA-12041558

PATIENT
  Sex: Female
  Weight: 75 kg

DRUGS (1)
  1. AZACITIDINE [Suspect]
     Dosage: 75 MILLIGRAM/SQ. METER
     Route: 058
     Dates: start: 20120327, end: 20120402

REACTIONS (3)
  - RESPIRATORY FAILURE [None]
  - CLOSTRIDIUM DIFFICILE COLITIS [None]
  - PNEUMONIA MYCOPLASMAL [None]
